FAERS Safety Report 14022460 (Version 3)
Quarter: 2018Q2

REPORT INFORMATION
  Report Type: Spontaneous
  Country: US (occurrence: US)
  Receive Date: 20170928
  Receipt Date: 20180613
  Transmission Date: 20180711
  Serious: Yes (Other)
  Sender: FDA-Public Use
  Company Number: US-ASTRAZENECA-2017SE98497

PATIENT
  Age: 37 Year
  Sex: Female
  Weight: 61.2 kg

DRUGS (3)
  1. VENTOLIN MDI [Concomitant]
     Indication: ASTHMA
     Dosage: AS REQUIRED
     Route: 055
  2. VENTOLIN MDI [Concomitant]
     Indication: INHALATION THERAPY
     Dosage: AS REQUIRED
     Route: 055
  3. SYMBICORT [Suspect]
     Active Substance: BUDESONIDE\FORMOTEROL FUMARATE DIHYDRATE
     Indication: ASTHMA
     Dosage: 80/4.5 MCG,TWO INHALATIONS TWICE DAILY
     Route: 055
     Dates: start: 2017

REACTIONS (7)
  - Parathyroid tumour [Unknown]
  - Drug dose omission [Unknown]
  - Hypocalcaemia [Unknown]
  - Off label use of device [Unknown]
  - Device failure [Unknown]
  - Intentional device misuse [Not Recovered/Not Resolved]
  - Visual impairment [Unknown]

NARRATIVE: CASE EVENT DATE: 2017
